FAERS Safety Report 5486814-8 (Version None)
Quarter: 2007Q4

REPORT INFORMATION
  Report Type: 
  Country: None (occurrence: None)
  Receive Date: 20071012
  Receipt Date: 20071012
  Transmission Date: 20080405
  Serious: Yes (Life-Threatening)
  Sender: FDA-Public Use
  Company Number: None

PATIENT
  Sex: Female
  Weight: 64.4108 kg

DRUGS (2)
  1. CHANTIX [Suspect]
     Dosage: 0.5MG START - UP PO
     Route: 048
     Dates: start: 20070808, end: 20070815
  2. CHANTIX [Suspect]
     Dosage: 1 MG BID PO
     Route: 048
     Dates: start: 20070816, end: 20070822

REACTIONS (2)
  - DEPRESSION [None]
  - SUICIDE ATTEMPT [None]
